FAERS Safety Report 5062520-9 (Version None)
Quarter: 2006Q3

REPORT INFORMATION
  Report Type: 
  Country: None (occurrence: None)
  Receive Date: 20060726
  Receipt Date: 20060518
  Transmission Date: 20061208
  Serious: Yes (Death)
  Sender: FDA-Public Use
  Company Number: 2006SE02846

PATIENT
  Age: 71 Year
  Sex: Female

DRUGS (8)
  1. BLOPRESS [Suspect]
     Indication: HYPERTENSION
     Route: 048
     Dates: start: 20060210, end: 20060218
  2. BLOPRESS [Suspect]
     Route: 048
     Dates: start: 20060219
  3. RIKAVERIN [Concomitant]
     Route: 048
     Dates: start: 20060210, end: 20060223
  4. NEUROVITAN [Concomitant]
     Route: 048
     Dates: start: 20060210, end: 20060214
  5. ALLEGRA [Concomitant]
     Route: 048
     Dates: start: 20060218, end: 20060223
  6. MEDICON [Concomitant]
     Route: 048
     Dates: start: 20060218, end: 20060223
  7. DEXALTIN [Concomitant]
     Route: 062
     Dates: start: 20060210
  8. CALONAL [Concomitant]
     Route: 048

REACTIONS (2)
  - DIZZINESS [None]
  - INTERSTITIAL LUNG DISEASE [None]
